FAERS Safety Report 5325972-2 (Version None)
Quarter: 2007Q2

REPORT INFORMATION
  Report Type: 
  Country: None (occurrence: None)
  Receive Date: 20070516
  Receipt Date: 20070406
  Transmission Date: 20071010
  Serious: No
  Sender: FDA-Public Use
  Company Number: A0646201A

PATIENT
  Age: 63 Year
  Sex: Female

DRUGS (2)
  1. COREG CR [Suspect]
     Indication: HYPERTENSION
     Dosage: 10MG AT NIGHT
     Route: 048
     Dates: start: 20070402
  2. ACIPHEX [Concomitant]

REACTIONS (1)
  - EUPHORIC MOOD [None]
